FAERS Safety Report 6269626-7 (Version None)
Quarter: 2009Q3

REPORT INFORMATION
  Report Type: 
  Country: None (occurrence: None)
  Receive Date: 20090714
  Receipt Date: 20090706
  Transmission Date: 20100115
  Serious: Yes (Hospitalization)
  Sender: FDA-Public Use
  Company Number: 2008AL003986

PATIENT
  Age: 74 Year
  Sex: Female
  Weight: 74.8435 kg

DRUGS (6)
  1. DIGOXIN [Suspect]
     Indication: ATRIAL FIBRILLATION
     Dosage: 0.25MG, DAILY, PO
     Route: 048
     Dates: start: 20000101, end: 20080420
  2. GOLOSTE UNSPECIFIED [Concomitant]
  3. LIPITOR [Concomitant]
  4. BENICAR [Concomitant]
  5. DILTIAZEM [Concomitant]
  6. TRICUSPID [Concomitant]

REACTIONS (10)
  - ATRIOVENTRICULAR BLOCK COMPLETE [None]
  - BRADYCARDIA [None]
  - CAROTID ARTERY STENOSIS [None]
  - COMA [None]
  - DIALYSIS [None]
  - HYPOTENSION [None]
  - INTERNATIONAL NORMALISED RATIO DECREASED [None]
  - NECK PAIN [None]
  - RENAL FAILURE ACUTE [None]
  - THERAPEUTIC AGENT TOXICITY [None]
